FAERS Safety Report 11915764 (Version 1)
Quarter: 2016Q1

REPORT INFORMATION
  Report Type: Spontaneous
  Country: US (occurrence: US)
  Receive Date: 20160114
  Receipt Date: 20160114
  Transmission Date: 20160526
  Serious: No
  Sender: FDA-Public Use
  Company Number: US-BAYER-2016-007780

PATIENT
  Age: 68 Year
  Sex: Female
  Weight: 68.27 kg

DRUGS (6)
  1. NEXIUM [Concomitant]
     Active Substance: ESOMEPRAZOLE MAGNESIUM
  2. POTASSIUM [Concomitant]
     Active Substance: POTASSIUM
  3. LOSARTAN. [Concomitant]
     Active Substance: LOSARTAN
  4. MIRALAX [Suspect]
     Active Substance: POLYETHYLENE GLYCOL 3350
     Indication: CONSTIPATION
     Dosage: 1 DF, PRN
     Route: 048
     Dates: start: 201601, end: 20160112
  5. METFORMIN [Concomitant]
     Active Substance: METFORMIN HYDROCHLORIDE
  6. GABAPENTIN. [Concomitant]
     Active Substance: GABAPENTIN

REACTIONS (3)
  - Swelling [None]
  - Drug ineffective [None]
  - Abdominal rigidity [None]

NARRATIVE: CASE EVENT DATE: 201601
